FAERS Safety Report 6604947-7 (Version None)
Quarter: 2010Q1

REPORT INFORMATION
  Report Type: 
  Country: None (occurrence: None)
  Receive Date: 20100226
  Receipt Date: 20100219
  Transmission Date: 20100710
  Serious: Yes (Hospitalization, Other)
  Sender: FDA-Public Use
  Company Number: US-SANOFI-AVENTIS-2010SA006888

PATIENT
  Age: 57 Year
  Sex: Female
  Weight: 58.6 kg

DRUGS (7)
  1. OXALIPLATIN [Suspect]
     Route: 041
     Dates: start: 20100201, end: 20100201
  2. EPIRUBICIN [Suspect]
     Route: 042
     Dates: start: 20100201, end: 20100201
  3. 5-FU [Suspect]
     Route: 041
     Dates: start: 20100201
  4. ANTI-SMOKING AGENTS [Concomitant]
     Route: 065
  5. KYTRIL [Concomitant]
     Route: 042
  6. DIPHENHYDRAMINE HYDROCHLORIDE [Concomitant]
     Route: 042
  7. DEXAMETHASONE [Concomitant]
     Route: 042

REACTIONS (3)
  - CONSTIPATION [None]
  - DYSAESTHESIA PHARYNX [None]
  - LARGE INTESTINAL ULCER [None]
